FAERS Safety Report 9124378 (Version 2)
Quarter: 2013Q3

REPORT INFORMATION
  Report Type: Spontaneous
  Country: US (occurrence: US)
  Receive Date: 20130227
  Receipt Date: 20130905
  Transmission Date: 20140515
  Serious: Yes (Death)
  Sender: FDA-Public Use
  Company Number: US-GILEAD-2013-0070675

PATIENT
  Age: 81 Year
  Sex: Female

DRUGS (3)
  1. LETAIRIS [Suspect]
     Indication: PULMONARY ARTERIAL HYPERTENSION
     Dosage: 5 MG, QD
     Route: 048
     Dates: start: 20110605
  2. LETAIRIS [Suspect]
     Indication: PORTAL SHUNT
  3. LETAIRIS [Suspect]
     Indication: CATHETERISATION CARDIAC

REACTIONS (2)
  - Atrial fibrillation [Fatal]
  - Renal failure [Fatal]
